FAERS Safety Report 4452398-6 (Version None)
Quarter: 2004Q3

REPORT INFORMATION
  Report Type: 
  Country: None (occurrence: None)
  Receive Date: 20040917
  Receipt Date: 20040907
  Transmission Date: 20050211
  Serious: Yes (Hospitalization, Other)
  Sender: FDA-Public Use
  Company Number: PHEH2004US09597

PATIENT
  Age: 64 Year
  Sex: Male

DRUGS (9)
  1. GLEEVEC [Suspect]
     Indication: GASTROINTESTINAL STROMAL TUMOUR
     Dosage: 400 MG, QD
     Route: 048
     Dates: start: 20040823
  2. ALLOPURINOL [Concomitant]
  3. POTASSIUM [Concomitant]
  4. METOPROLOL [Concomitant]
  5. ASPIRIN [Concomitant]
  6. PLAVIX [Concomitant]
  7. LIPITOR [Concomitant]
  8. COZAAR [Concomitant]
  9. GLEEVEC [Suspect]
     Dosage: 400 MG, QD
     Route: 048
     Dates: start: 20020101, end: 20030801

REACTIONS (6)
  - ABDOMINAL PAIN UPPER [None]
  - ANAL SPHINCTEROTOMY [None]
  - COLOSTOMY [None]
  - DRUG INEFFECTIVE [None]
  - GASTROINTESTINAL STROMAL TUMOUR [None]
  - LUNG NEOPLASM [None]
